FAERS Safety Report 17638485 (Version 2)
Quarter: 2020Q2

REPORT INFORMATION
  Report Type: Spontaneous
  Country: CA (occurrence: CA)
  Receive Date: 20200407
  Receipt Date: 20200415
  Transmission Date: 20200713
  Serious: Yes (Death, Other)
  Sender: FDA-Public Use
  Company Number: CA-TEVA-2020-CA-1218198

PATIENT
  Age: 71 Year
  Sex: Male

DRUGS (4)
  1. LITHIUM. [Suspect]
     Active Substance: LITHIUM
     Route: 065
  2. PAMIDRONATE [Suspect]
     Active Substance: PAMIDRONATE DISODIUM
     Indication: HYPERCALCAEMIA
     Dosage: TWO DOSES
     Route: 065
  3. CINACALCET. [Suspect]
     Active Substance: CINACALCET
     Indication: HYPERPARATHYROIDISM TERTIARY
     Route: 065
  4. DENOSUMAB [Suspect]
     Active Substance: DENOSUMAB
     Indication: HYPERCALCAEMIA
     Dosage: 120 MG SINGLE DOSE
     Route: 058
     Dates: start: 201805

REACTIONS (6)
  - Gastrointestinal disorder [Unknown]
  - Hypocalcaemia [Recovering/Resolving]
  - Off label use [Unknown]
  - Renal failure [Unknown]
  - Chronic kidney disease [Unknown]
  - Drug ineffective [Unknown]
